FAERS Safety Report 6268767-8 (Version None)
Quarter: 2009Q3

REPORT INFORMATION
  Report Type: 
  Country: None (occurrence: None)
  Receive Date: 20090715
  Receipt Date: 20090709
  Transmission Date: 20100115
  Serious: Yes (Other)
  Sender: FDA-Public Use
  Company Number: US-JNJCH-2009018778

PATIENT
  Sex: Female

DRUGS (3)
  1. LISTERINE VANILLA MINT [Suspect]
     Indication: ALCOHOLIC
     Dosage: TEXT:ONE BOTTLE OVER TWO DAYS
     Route: 048
     Dates: start: 20090703, end: 20090704
  2. COOL MINT LISTERINE [Suspect]
     Indication: ALCOHOLIC
     Dosage: TEXT:ONE BOTTLE OVER TWO DAYS
     Route: 048
     Dates: start: 20090703, end: 20090704
  3. ETHANOL [Suspect]
     Indication: ALCOHOLIC
     Dosage: TEXT:UNKNOWN
     Route: 048
     Dates: start: 20090703, end: 20090704

REACTIONS (4)
  - ABDOMINAL DISCOMFORT [None]
  - INCORRECT ROUTE OF DRUG ADMINISTRATION [None]
  - INTENTIONAL DRUG MISUSE [None]
  - MUSCLE SPASMS [None]
